FAERS Safety Report 25667619 (Version 1)
Quarter: 2025Q3

REPORT INFORMATION
  Report Type: Report from Study
  Country: US (occurrence: US)
  Receive Date: 20250811
  Receipt Date: 20250811
  Transmission Date: 20251020
  Serious: Yes (Hospitalization)
  Sender: ABBVIE
  Company Number: US-ABBVIE-6407862

PATIENT
  Age: 82 Year
  Sex: Female

DRUGS (1)
  1. VENCLEXTA [Suspect]
     Active Substance: VENETOCLAX
     Indication: Chronic lymphocytic leukaemia
     Route: 048
     Dates: start: 20230610

REACTIONS (5)
  - Peripheral swelling [Unknown]
  - Pain in extremity [Unknown]
  - Rash [Unknown]
  - Joint stiffness [Unknown]
  - Oedema peripheral [Unknown]
